FAERS Safety Report 4634109-4 (Version None)
Quarter: 2005Q2

REPORT INFORMATION
  Report Type: 
  Country: None (occurrence: None)
  Receive Date: 20050413
  Receipt Date: 20050228
  Transmission Date: 20051028
  Serious: Yes (Hospitalization)
  Sender: FDA-Public Use
  Company Number: JP-GLAXOSMITHKLINE-B0373634A

PATIENT
  Age: 47 Year
  Sex: Male
  Weight: 54 kg

DRUGS (8)
  1. PAXIL [Suspect]
     Indication: DEPRESSION
     Route: 048
     Dates: start: 20050118, end: 20050218
  2. DOGMATYL [Suspect]
     Indication: GASTRITIS
     Route: 048
     Dates: start: 20050118, end: 20050211
  3. DEPAS [Suspect]
     Indication: DEPRESSION
     Dosage: 2MG PER DAY
     Route: 048
     Dates: start: 20050118, end: 20050211
  4. TASMOLIN [Concomitant]
     Indication: PARKINSONISM
     Dosage: 2MG PER DAY
     Route: 048
     Dates: start: 20050129, end: 20050211
  5. LIMAS [Concomitant]
     Indication: MANIA
     Route: 048
     Dates: start: 20050212
  6. VEGETAMIN-B [Concomitant]
     Indication: MANIA
     Dosage: 1TAB PER DAY
     Route: 048
     Dates: start: 20050212, end: 20050218
  7. VITAMIN A [Concomitant]
     Indication: MANIA
     Route: 048
     Dates: start: 20050219
  8. RISPERDAL [Concomitant]
     Indication: MANIA
     Dosage: 1MG THREE TIMES PER DAY
     Route: 048
     Dates: start: 20050225

REACTIONS (9)
  - AGGRESSION [None]
  - DEPRESSION [None]
  - DISINHIBITION [None]
  - MALAISE [None]
  - MANIA [None]
  - OBSESSIVE-COMPULSIVE DISORDER [None]
  - POLYDIPSIA [None]
  - PSYCHOMOTOR HYPERACTIVITY [None]
  - VERBAL ABUSE [None]
